FAERS Safety Report 25873271 (Version 7)
Quarter: 2025Q4

REPORT INFORMATION
  Report Type: Spontaneous
  Country: US (occurrence: US)
  Receive Date: 20251002
  Receipt Date: 20251201
  Transmission Date: 20260117
  Serious: No
  Sender: PFIZER
  Company Number: US-PFIZER INC-202500193669

PATIENT
  Age: 14 Year
  Sex: Female
  Weight: 42.8 kg

DRUGS (1)
  1. GENOTROPIN [Suspect]
     Active Substance: SOMATROPIN
     Indication: Growth hormone deficiency
     Dosage: 1.4 MG, 6 DAYS A WEEK
     Route: 058
     Dates: start: 2021

REACTIONS (6)
  - Device physical property issue [Unknown]
  - Device material issue [Unknown]
  - Device use error [Unknown]
  - Device breakage [Unknown]
  - Device mechanical issue [Unknown]
  - Drug dose omission by device [Unknown]

NARRATIVE: CASE EVENT DATE: 20250925
